FAERS Safety Report 17325825 (Version 1)
Quarter: 2020Q1

REPORT INFORMATION
  Report Type: Spontaneous
  Country: RO (occurrence: RO)
  Receive Date: 20200127
  Receipt Date: 20200127
  Transmission Date: 20200409
  Serious: Yes (Other)
  Sender: FDA-Public Use
  Company Number: RO-MYLANLABS-2020M1007826

PATIENT
  Age: 49 Year
  Sex: Male

DRUGS (8)
  1. GENTAMICIN. [Suspect]
     Active Substance: GENTAMICIN
     Indication: ENCEPHALITIS
     Dosage: UNK
  2. CEFOTAXIME SODIUM [Suspect]
     Active Substance: CEFOTAXIME SODIUM
     Indication: ENCEPHALITIS
     Dosage: UNK
  3. AMPICILLIN [Suspect]
     Active Substance: AMPICILLIN
     Indication: ENCEPHALITIS
     Dosage: UNK
  4. CLINDAMYCIN. [Suspect]
     Active Substance: CLINDAMYCIN
     Indication: ENCEPHALITIS
     Dosage: UNK
  5. VANCOMYCIN [Suspect]
     Active Substance: VANCOMYCIN
     Indication: ENCEPHALITIS
     Dosage: UNK
  6. LINEZOLID. [Suspect]
     Active Substance: LINEZOLID
     Indication: ENCEPHALITIS
     Dosage: UNK
  7. RIFAMPICIN [Suspect]
     Active Substance: RIFAMPIN
     Indication: ENCEPHALITIS
     Dosage: UNK
  8. COTRIMOXAZOLE [Suspect]
     Active Substance: SULFAMETHOXAZOLE\TRIMETHOPRIM
     Indication: ENCEPHALITIS
     Dosage: UNK

REACTIONS (8)
  - Blood creatinine increased [Unknown]
  - Dyspnoea [Unknown]
  - Retinal detachment [Unknown]
  - Endophthalmitis [Unknown]
  - Pyrexia [Unknown]
  - Visual acuity reduced [Unknown]
  - Endocarditis [Unknown]
  - Blood urea increased [Unknown]
